FAERS Safety Report 6271354-9 (Version None)
Quarter: 2009Q3

REPORT INFORMATION
  Report Type: 
  Country: None (occurrence: None)
  Receive Date: 20090717
  Receipt Date: 20070705
  Transmission Date: 20100115
  Serious: Yes (Other)
  Sender: FDA-Public Use
  Company Number: US-ASTRAZENECA-2006UW26459

PATIENT
  Age: 499 Month
  Sex: Female
  Weight: 86.2 kg

DRUGS (15)
  1. SEROQUEL [Suspect]
     Indication: DEPRESSION
     Route: 048
     Dates: start: 20050101, end: 20050101
  2. SEROQUEL [Suspect]
     Route: 048
     Dates: start: 20030325
  3. CLOZARIL [Concomitant]
  4. RISPERDAL [Concomitant]
  5. FLUOXETINE HCL [Concomitant]
     Indication: DEPRESSION
     Dates: start: 20060801
  6. TRAZODONE [Concomitant]
     Indication: NERVOUSNESS
     Dosage: 100 TO 200 MG AT NIGHT
     Dates: start: 20030325
  7. MIRTAZAPINE [Concomitant]
     Dates: start: 20030325
  8. RISPERIDONE [Concomitant]
     Route: 048
     Dates: start: 20060801
  9. CLONAZEPAM [Concomitant]
     Indication: SLEEP DISORDER
     Dates: start: 20060801
  10. ASPIRIN [Concomitant]
     Indication: HEADACHE
     Route: 048
     Dates: start: 20060801
  11. BUTALBITAL [Concomitant]
     Indication: HEADACHE
     Dosage: 50 MG, TWO TABLETS AT NIGHT
     Route: 048
     Dates: start: 20060801
  12. CAFFEINE [Concomitant]
     Indication: HEADACHE
     Dosage: 40 MG, TWO TABLETS AT NIGHT
     Route: 048
     Dates: start: 20060801
  13. GABAPENTIN [Concomitant]
     Indication: NEURALGIA
     Route: 048
     Dates: start: 20060801
  14. LORATADINE [Concomitant]
     Route: 048
     Dates: start: 20060801
  15. METFORMIN HCL [Concomitant]
     Indication: TYPE 2 DIABETES MELLITUS
     Dosage: 500 MG TWO TABLETS AT NIGHT
     Dates: start: 20060801

REACTIONS (4)
  - DIABETES MELLITUS [None]
  - NEUROPATHY PERIPHERAL [None]
  - PANCREATITIS [None]
  - TYPE 2 DIABETES MELLITUS [None]
